FAERS Safety Report 7108793-X (Version None)
Quarter: 2010Q4

REPORT INFORMATION
  Report Type: 
  Country: None (occurrence: None)
  Receive Date: 20101117
  Receipt Date: 20101110
  Transmission Date: 20110411
  Serious: Yes (Death, Hospitalization)
  Sender: FDA-Public Use
  Company Number: BR-ACTELION-A-CH2010-38298

PATIENT
  Sex: Male

DRUGS (3)
  1. ZAVESCA [Suspect]
     Indication: NIEMANN-PICK DISEASE
     Dosage: 100 MG, QD
     Route: 048
     Dates: start: 20100501, end: 20100719
  2. ZAVESCA [Suspect]
     Dosage: 200 MG, TID
     Route: 048
     Dates: start: 20070901, end: 20100501
  3. DEPAKOTE [Concomitant]

REACTIONS (14)
  - APNOEA [None]
  - BACTERAEMIA [None]
  - CONVULSION [None]
  - EAR INFECTION [None]
  - HYPERREFLEXIA [None]
  - INCREASED BRONCHIAL SECRETION [None]
  - NIEMANN-PICK DISEASE [None]
  - PLEURAL EFFUSION [None]
  - PNEUMONIA [None]
  - PYREXIA [None]
  - RESPIRATORY FAILURE [None]
  - RESPIRATORY TRACT INFECTION [None]
  - SCOLIOSIS [None]
  - ULCER [None]
